FAERS Safety Report 25014939 (Version 1)
Quarter: 2025Q1

REPORT INFORMATION
  Report Type: Spontaneous
  Country: US (occurrence: None)
  Receive Date: 20250226
  Receipt Date: 20250226
  Transmission Date: 20250409
  Serious: Yes (Other)
  Sender: FDA-CTU
  Company Number: None

PATIENT
  Age: 36 Year
  Sex: Female
  Weight: 72.57 kg

DRUGS (1)
  1. BRIXADI [Suspect]
     Active Substance: BUPRENORPHINE
     Indication: Drug dependence
     Dosage: OTHER FREQUENCY : WEEKLY;?
     Route: 058
     Dates: start: 20250128, end: 20250224

REACTIONS (4)
  - Injection site pruritus [None]
  - Injection site erythema [None]
  - Injection site rash [None]
  - Rash [None]

NARRATIVE: CASE EVENT DATE: 20250220
